FAERS Safety Report 7871147-2 (Version None)
Quarter: 2011Q4

REPORT INFORMATION
  Report Type: 
  Country: None (occurrence: None)
  Receive Date: 20111029
  Receipt Date: 20110225
  Transmission Date: 20120403
  Serious: No
  Sender: FDA-Public Use
  Company Number: US-AMGEN-USASP2011011034

PATIENT
  Age: 65 Year
  Sex: Female

DRUGS (2)
  1. ENBREL [Suspect]
     Indication: RHEUMATOID ARTHRITIS
     Dates: start: 20021119
  2. PLAQUENIL [Concomitant]
     Dates: start: 20060101

REACTIONS (6)
  - BRONCHITIS [None]
  - WHITE BLOOD CELL COUNT INCREASED [None]
  - FALL [None]
  - MOBILITY DECREASED [None]
  - RHEUMATOID ARTHRITIS [None]
  - HAND FRACTURE [None]
